FAERS Safety Report 10582488 (Version 1)
Quarter: 2014Q4

REPORT INFORMATION
  Report Type: Report from Study
  Country: DE (occurrence: DE)
  Receive Date: 20141113
  Receipt Date: 20141113
  Transmission Date: 20150529
  Serious: Yes (Death)
  Sender: FDA-Public Use
  Company Number: DE-SA-2014SA151642

PATIENT
  Age: 13 Month
  Sex: Female
  Weight: 8.5 kg

DRUGS (9)
  1. CAMPATH [Suspect]
     Active Substance: ALEMTUZUMAB
     Indication: BONE MARROW CONDITIONING REGIMEN
     Route: 065
     Dates: start: 20141029, end: 20141101
  2. PIPERACILLIN [Concomitant]
     Active Substance: PIPERACILLIN
     Indication: ANTI-INFECTIVE THERAPY
     Dates: start: 20141016, end: 20141102
  3. CAMPATH [Suspect]
     Active Substance: ALEMTUZUMAB
     Indication: BONE MARROW CONDITIONING REGIMEN
     Route: 065
     Dates: start: 20141029, end: 20141029
  4. ONDANSETRON [Concomitant]
     Active Substance: ONDANSETRON
     Indication: ANTIEMETIC SUPPORTIVE CARE
     Dates: start: 20141013, end: 20141102
  5. FLUDARABINE [Concomitant]
     Active Substance: FLUDARABINE PHOSPHATE
     Indication: BONE MARROW CONDITIONING REGIMEN
     Route: 042
     Dates: start: 20141030, end: 20141102
  6. MORPHINE [Concomitant]
     Active Substance: MORPHINE
     Indication: PAIN
     Dates: start: 20141013, end: 20141102
  7. TEICOPLANIN [Concomitant]
     Active Substance: TEICOPLANIN
     Indication: ANTI-INFECTIVE THERAPY
     Dates: start: 20141016, end: 20141102
  8. AMBISOME [Concomitant]
     Active Substance: AMPHOTERICIN B
     Indication: ANTI-INFECTIVE THERAPY
     Dates: start: 20141016, end: 20141102
  9. MELPHALAN [Concomitant]
     Active Substance: MELPHALAN
     Indication: BONE MARROW CONDITIONING REGIMEN
     Dates: start: 20141029, end: 20141102

REACTIONS (1)
  - Langerhans^ cell histiocytosis [Fatal]

NARRATIVE: CASE EVENT DATE: 20141029
